FAERS Safety Report 20855063 (Version 1)
Quarter: 2022Q2

REPORT INFORMATION
  Report Type: Spontaneous
  Country: US (occurrence: None)
  Receive Date: 20220519
  Receipt Date: 20220519
  Transmission Date: 20220720
  Serious: Yes (Disabling)
  Sender: FDA-Public Use
  Company Number: None

PATIENT
  Age: 35 Year
  Sex: Female
  Weight: 56.25 kg

DRUGS (1)
  1. AJOVY [Suspect]
     Active Substance: FREMANEZUMAB-VFRM
     Indication: Migraine
     Dosage: FREQUENCY : MONTHLY;?
     Route: 058
     Dates: start: 20220106, end: 20220215

REACTIONS (12)
  - Fatigue [None]
  - Confusional state [None]
  - Feeling abnormal [None]
  - Nausea [None]
  - Decreased appetite [None]
  - Disturbance in attention [None]
  - Anxiety [None]
  - Speech disorder [None]
  - Anger [None]
  - Impaired work ability [None]
  - Loss of personal independence in daily activities [None]
  - Feeling abnormal [None]

NARRATIVE: CASE EVENT DATE: 20220306
